FAERS Safety Report 20722076 (Version 1)
Quarter: 2022Q2

REPORT INFORMATION
  Report Type: Spontaneous
  Country: US (occurrence: None)
  Receive Date: 20220418
  Receipt Date: 20220418
  Transmission Date: 20220720
  Serious: No
  Sender: FDA-Public Use
  Company Number: None

PATIENT
  Sex: Male

DRUGS (7)
  1. ERIVEDGE [Suspect]
     Active Substance: VISMODEGIB
     Dates: start: 20220223
  2. Aspirin 81mg tablet [Concomitant]
  3. Cranberry 200mg capsules [Concomitant]
  4. Fish oil 1000mg capsules [Concomitant]
  5. Metamucil powder 283gm [Concomitant]
  6. Ocuvite tablet [Concomitant]
  7. PROBIOTICS NOS [Concomitant]
     Active Substance: PROBIOTICS NOS

REACTIONS (2)
  - Diarrhoea [None]
  - Fatigue [None]
